FAERS Safety Report 9513332 (Version 1)
Quarter: 2013Q1

REPORT INFORMATION
  Report Type: Spontaneous
  Country: US (occurrence: None)
  Receive Date: 20130305
  Receipt Date: 20130305
  Transmission Date: 20140127
  Serious: Yes (Hospitalization, Other)
  Sender: FDA-Public Use
  Company Number: 163-21880-12042436

PATIENT
  Age: 73 Year
  Sex: Male

DRUGS (7)
  1. LASIX (FUROSEMIDE) [Concomitant]
  2. NIFEDIPINE (NIFEDIPINE) (NIFEDIPINE) [Concomitant]
  3. BACLOFEN (BACLOFEN) [Concomitant]
  4. DIAZEPAM (DIAZEPAM) [Concomitant]
  5. FENTANYL (FENTANYL) (POULTRICE OR PATCH) [Concomitant]
  6. REVLIMID [Suspect]
     Indication: LICHENIFICATION
     Route: 048
     Dates: start: 20120324, end: 20120417
  7. POTASSIUM (POTASSIUM) [Concomitant]

REACTIONS (8)
  - Rectal haemorrhage [None]
  - Vomiting [None]
  - Constipation [None]
  - Pyrexia [None]
  - Chills [None]
  - Headache [None]
  - Asthenia [None]
  - Tremor [None]
